FAERS Safety Report 4638288-4 (Version None)
Quarter: 2005Q2

REPORT INFORMATION
  Report Type: 
  Country: None (occurrence: None)
  Receive Date: 20050415
  Receipt Date: 20050328
  Transmission Date: 20051028
  Serious: Yes (Other)
  Sender: FDA-Public Use
  Company Number: CA_041107403

PATIENT
  Age: 83 Year
  Sex: Female

DRUGS (3)
  1. FORTEO [Suspect]
     Indication: OSTEOPOROSIS
     Dosage: 20 UG/1 DAY
     Dates: start: 20041022
  2. MORPHINE [Concomitant]
  3. NITRO (GLYCERYL TRINITRATE) [Concomitant]

REACTIONS (7)
  - ANGINA PECTORIS [None]
  - ATRIAL FIBRILLATION [None]
  - CHEST DISCOMFORT [None]
  - DYSPNOEA [None]
  - MITRAL VALVE DISEASE [None]
  - PALPITATIONS [None]
  - TRICUSPID VALVE DISEASE [None]
